FAERS Safety Report 5148402-2 (Version None)
Quarter: 2006Q4

REPORT INFORMATION
  Report Type: 
  Country: None (occurrence: None)
  Receive Date: 20061110
  Receipt Date: 20060713
  Transmission Date: 20070319
  Serious: Yes (Death, Hospitalization, Other)
  Sender: FDA-Public Use
  Company Number: JP-MERCK-0607USA03611

PATIENT
  Age: 73 Year
  Sex: Female

DRUGS (12)
  1. FOSAMAX [Suspect]
     Indication: OSTEOPOROSIS
     Route: 048
     Dates: start: 20051019, end: 20060627
  2. FOSAMAX [Suspect]
     Route: 048
     Dates: start: 20030207, end: 20051003
  3. MOBIC [Concomitant]
     Route: 065
     Dates: start: 20040301
  4. GASTROINTESTINAL PREPARATIONS (UNSPECIFIED) [Concomitant]
     Route: 065
     Dates: start: 20040301
  5. BLOPRESS [Concomitant]
     Route: 065
     Dates: start: 20040301
  6. TENORMIN [Concomitant]
     Route: 065
  7. LASIX [Concomitant]
     Route: 065
  8. RIZE [Concomitant]
     Route: 065
  9. BETAHISTINE MESYLATE [Concomitant]
     Route: 065
  10. VOLTAREN [Concomitant]
     Indication: PAIN
     Route: 065
  11. FAMOTIDINE [Concomitant]
     Indication: DYSPEPSIA
     Route: 065
     Dates: start: 20051101
  12. CARBOCAINE [Concomitant]
     Indication: SPINAL OSTEOARTHRITIS
     Route: 065
     Dates: start: 20030214

REACTIONS (4)
  - AORTIC RUPTURE [None]
  - DYSPEPSIA [None]
  - OSTEOMYELITIS [None]
  - OSTEONECROSIS [None]
